FAERS Safety Report 23124395 (Version 1)
Quarter: 2023Q4

REPORT INFORMATION
  Report Type: Spontaneous
  Country: US (occurrence: None)
  Receive Date: 20231028
  Receipt Date: 20231028
  Transmission Date: 20240109
  Serious: Yes (Death, Life-Threatening, Hospitalization)
  Sender: FDA-Public Use
  Company Number: None

PATIENT
  Age: 71 Year
  Sex: Female
  Weight: 57.9 kg

DRUGS (1)
  1. BRENTUXIMAB [Suspect]
     Active Substance: BRENTUXIMAB
     Indication: Peripheral T-cell lymphoma unspecified
     Dosage: OTHER FREQUENCY : EVERY 3 WEEKS;?
     Dates: end: 20231004

REACTIONS (5)
  - Stevens-Johnson syndrome [None]
  - Toxic epidermal necrolysis [None]
  - Erythema multiforme [None]
  - Drug reaction with eosinophilia and systemic symptoms [None]
  - Pemphigoid [None]

NARRATIVE: CASE EVENT DATE: 20231004
